FAERS Safety Report 12309506 (Version 1)
Quarter: 2016Q2

REPORT INFORMATION
  Report Type: Spontaneous
  Country: US (occurrence: None)
  Receive Date: 20160426
  Receipt Date: 20160426
  Transmission Date: 20160815
  Serious: Yes (Hospitalization)
  Sender: FDA-Public Use
  Company Number: None

PATIENT
  Age: 83 Year
  Sex: Male
  Weight: 105.24 kg

DRUGS (10)
  1. POTASSIUM CHLORIDE. [Concomitant]
     Active Substance: POTASSIUM CHLORIDE
  2. FINASTERIDE. [Concomitant]
     Active Substance: FINASTERIDE
  3. ASPIRIN. [Concomitant]
     Active Substance: ASPIRIN
  4. HARVONI [Suspect]
     Active Substance: LEDIPASVIR\SOFOSBUVIR
     Indication: HEPATITIS C
     Dosage: 90-400  1X DAILY ORAL ?
     Route: 048
     Dates: start: 20150624, end: 20151209
  5. ENALAPRIL [Concomitant]
     Active Substance: ENALAPRIL
  6. TRAMADOL. [Concomitant]
     Active Substance: TRAMADOL
  7. MULTIVITAMIN [Concomitant]
     Active Substance: VITAMINS
  8. FISH OIL [Concomitant]
     Active Substance: FISH OIL
  9. FUROSEMIDE. [Concomitant]
     Active Substance: FUROSEMIDE
  10. DILTIAZEM [Concomitant]
     Active Substance: DILTIAZEM

REACTIONS (2)
  - Gastrointestinal haemorrhage [None]
  - Respiratory failure [None]

NARRATIVE: CASE EVENT DATE: 20160126
